FAERS Safety Report 25325768 (Version 1)
Quarter: 2025Q2

REPORT INFORMATION
  Report Type: Report from Study
  Country: US (occurrence: US)
  Receive Date: 20250516
  Receipt Date: 20250516
  Transmission Date: 20250716
  Serious: Yes (Other)
  Sender: BAYER HEALTHCARE PHARMACEUTICALS INC.
  Company Number: US-BAYER-2025A027614

PATIENT
  Age: 73 Year
  Sex: Female
  Weight: 56.689 kg

DRUGS (29)
  1. ADEMPAS [Suspect]
     Active Substance: RIOCIGUAT
     Indication: Pulmonary arterial hypertension
     Dates: start: 20250219
  2. ADEMPAS [Suspect]
     Active Substance: RIOCIGUAT
     Indication: Pulmonary arterial hypertension
     Dosage: 1 MG, TID
     Route: 048
  3. ADEMPAS [Suspect]
     Active Substance: RIOCIGUAT
     Indication: Pulmonary arterial hypertension
     Dosage: 1.5 MG, TID
     Route: 048
  4. ADEMPAS [Suspect]
     Active Substance: RIOCIGUAT
     Indication: Pulmonary arterial hypertension
     Dosage: 2 MG, TID
     Route: 048
  5. ADEMPAS [Suspect]
     Active Substance: RIOCIGUAT
     Indication: Pulmonary arterial hypertension
     Dosage: 2.5 MG, TID
     Route: 048
  6. ADEMPAS [Suspect]
     Active Substance: RIOCIGUAT
     Indication: Pulmonary arterial hypertension
     Dosage: 2.5 MG, TID
     Route: 048
  7. REMODULIN [Suspect]
     Active Substance: TREPROSTINIL
  8. FUROSEMIDE [Concomitant]
     Active Substance: FUROSEMIDE
  9. POTASSIUM ACETATE [Concomitant]
     Active Substance: POTASSIUM ACETATE
  10. NIFEDIPINE [Concomitant]
     Active Substance: NIFEDIPINE
  11. SODIUM CHLORIDE [Concomitant]
     Active Substance: SODIUM CHLORIDE
  12. ESOMEPRAZOLE MAGNESIUM [Concomitant]
     Active Substance: ESOMEPRAZOLE MAGNESIUM
  13. OPSUMIT [Concomitant]
     Active Substance: MACITENTAN
  14. VITAMIN D3 [Concomitant]
     Active Substance: CHOLECALCIFEROL
  15. SILDENAFIL CITRATE [Concomitant]
     Active Substance: SILDENAFIL CITRATE
  16. UNSPECIFIED INGREDIENT [Concomitant]
     Active Substance: UNSPECIFIED INGREDIENT
  17. WINREVAIR [Concomitant]
     Active Substance: SOTATERCEPT-CSRK
  18. ESCITALOPRAM OXALATE [Concomitant]
     Active Substance: ESCITALOPRAM OXALATE
  19. SIMVASTATIN [Concomitant]
     Active Substance: SIMVASTATIN
  20. VITAMIN B12 [Concomitant]
     Active Substance: CYANOCOBALAMIN
  21. ABRYSVO [Concomitant]
     Active Substance: RECOMBINANT STABILIZED RSV A PREFUSION F ANTIGEN\RECOMBINANT STABILIZED RSV B PREFUSION F ANTIGEN
  22. ALBUTEROL SULFATE [Concomitant]
     Active Substance: ALBUTEROL SULFATE
  23. POTASSIUM CHLORIDE [Concomitant]
     Active Substance: POTASSIUM CHLORIDE
  24. AFLURIA NOS [Concomitant]
     Active Substance: INFLUENZA VIRUS VACCINE TRIVALENT TYPE A+B AFLURIA
  25. ATORVASTATIN CALCIUM [Concomitant]
     Active Substance: ATORVASTATIN CALCIUM
  26. ORENITRAM [Concomitant]
     Active Substance: TREPROSTINIL
  27. ASPIRIN [Concomitant]
     Active Substance: ASPIRIN
  28. DIGOXIN [Concomitant]
     Active Substance: DIGOXIN
  29. BUMETANIDE [Concomitant]
     Active Substance: BUMETANIDE

REACTIONS (34)
  - Fluid retention [None]
  - Dyspnoea [None]
  - Swelling face [None]
  - Joint swelling [None]
  - Peripheral swelling [None]
  - Abdominal distension [None]
  - Injection site pain [Not Recovered/Not Resolved]
  - Fatigue [None]
  - Flushing [None]
  - Nasopharyngitis [Not Recovered/Not Resolved]
  - Oropharyngeal pain [Not Recovered/Not Resolved]
  - Nasal congestion [None]
  - Epistaxis [None]
  - Nasal dryness [None]
  - Cough [Not Recovered/Not Resolved]
  - Nausea [None]
  - Decreased appetite [None]
  - Productive cough [None]
  - Oedema peripheral [None]
  - Illness [None]
  - Erythema [None]
  - Malaise [Not Recovered/Not Resolved]
  - Speech disorder [None]
  - Injection site swelling [None]
  - Constipation [Not Recovered/Not Resolved]
  - Dyspnoea exertional [None]
  - Malaise [None]
  - Stress [None]
  - Asthenia [None]
  - Fatigue [None]
  - Weight decreased [None]
  - Decreased appetite [None]
  - Feeling abnormal [None]
  - Hypersomnia [None]

NARRATIVE: CASE EVENT DATE: 20250303
